FAERS Safety Report 16544571 (Version 1)
Quarter: 2019Q3

REPORT INFORMATION
  Report Type: Spontaneous
  Country: DE (occurrence: DE)
  Receive Date: 20190709
  Receipt Date: 20190709
  Transmission Date: 20191004
  Serious: Yes (Death, Other)
  Sender: FDA-Public Use
  Company Number: DE-B.I. PHARMACEUTICALS,INC./RIDGEFIELD-2019-BI-029200

PATIENT
  Age: 55 Year
  Sex: Male

DRUGS (1)
  1. GILOTRIF [Suspect]
     Active Substance: AFATINIB
     Indication: NON-SMALL CELL LUNG CANCER
     Route: 048
     Dates: start: 20170901, end: 20181001

REACTIONS (5)
  - General physical health deterioration [Unknown]
  - Dysphagia [Unknown]
  - Haemoptysis [Unknown]
  - Pneumothorax [Unknown]
  - Death [Fatal]

NARRATIVE: CASE EVENT DATE: 201811
